FAERS Safety Report 5702913-7 (Version None)
Quarter: 2008Q2

REPORT INFORMATION
  Report Type: 
  Country: None (occurrence: None)
  Receive Date: 20080411
  Receipt Date: 20080407
  Transmission Date: 20081010
  Serious: Yes (Hospitalization)
  Sender: FDA-Public Use
  Company Number: US-MERCK-0804USA01730

PATIENT
  Age: 74 Year
  Sex: Male

DRUGS (3)
  1. VYTORIN [Suspect]
     Indication: BLOOD CHOLESTEROL INCREASED
     Route: 048
     Dates: start: 20030101, end: 20080301
  2. ACTOS [Concomitant]
     Route: 065
  3. GLIPIZIDE [Concomitant]
     Route: 065

REACTIONS (1)
  - ARTERIOSCLEROSIS [None]
